FAERS Safety Report 4828282-2 (Version None)
Quarter: 2005Q4

REPORT INFORMATION
  Report Type: 
  Country: None (occurrence: None)
  Receive Date: 20051115
  Receipt Date: 20050621
  Transmission Date: 20060501
  Serious: No
  Sender: FDA-Public Use
  Company Number: US-BRISTOL-MYERS SQUIBB COMPANY-13010566

PATIENT
  Age: 46 Year
  Sex: Male
  Weight: 68 kg

DRUGS (1)
  1. SUSTIVA [Suspect]
     Indication: HIV INFECTION
     Dates: start: 20030501

REACTIONS (2)
  - NIGHTMARE [None]
  - PRURITUS [None]
